FAERS Safety Report 9831157 (Version 3)
Quarter: 2014Q1

REPORT INFORMATION
  Report Type: Report from Study
  Country: CA (occurrence: CA)
  Receive Date: 20140121
  Receipt Date: 20140124
  Transmission Date: 20141002
  Serious: Yes (Hospitalization)
  Sender: FDA-Public Use
  Company Number: CA-009507513-1309CAN006323

PATIENT
  Age: 48 Year
  Sex: Female
  Weight: 63.5 kg

DRUGS (13)
  1. BOCEPREVIR [Suspect]
     Indication: CHRONIC HEPATITIS C
     Dosage: 800 MG, TID
     Route: 048
     Dates: start: 20130312, end: 20130821
  2. BOCEPREVIR [Suspect]
     Dosage: 800 MG, QAM
     Route: 048
     Dates: start: 20130822, end: 20130822
  3. RIBAVIRIN [Suspect]
     Indication: CHRONIC HEPATITIS C
     Dosage: 2 DF, QAM
     Route: 048
     Dates: start: 20130212, end: 20130822
  4. RIBAVIRIN [Suspect]
     Dosage: 3 DF, QPM
     Route: 048
     Dates: start: 20130212, end: 20130822
  5. PEGINTERFERON ALFA-2A [Suspect]
     Indication: CHRONIC HEPATITIS C
     Dosage: 180 MICROGRAM, QW
     Route: 058
     Dates: start: 20130212, end: 20130604
  6. PEGINTERFERON ALFA-2A [Suspect]
     Dosage: 90 MICROGRAM, QW
     Route: 058
     Dates: start: 20130618, end: 20130618
  7. PEGINTERFERON ALFA-2A [Suspect]
     Dosage: 135 MICROGRAM, QW
     Route: 058
     Dates: start: 20130625, end: 20130702
  8. PEGINTERFERON ALFA-2A [Suspect]
     Dosage: 90 MICROGRAM, QW
     Route: 058
     Dates: start: 20130709, end: 20130730
  9. PEGINTERFERON ALFA-2A [Suspect]
     Dosage: 45 MICROGRAM, QW
     Route: 058
     Dates: start: 20130813, end: 20130813
  10. PEGINTERFERON ALFA-2A [Suspect]
     Dosage: 90 MICROGRAM, QW
     Route: 058
     Dates: start: 20130820, end: 20130820
  11. WELLBUTRIN [Concomitant]
     Indication: MOOD SWINGS
     Dosage: 100 MG, ?NCE
     Route: 048
     Dates: start: 20130820, end: 20130820
  12. BENADRYL [Concomitant]
     Indication: RASH
     Dosage: 50 MG DAILY
     Route: 048
     Dates: start: 20130403
  13. CLOBETASOL PROPIONATE [Concomitant]
     Indication: RASH
     Dosage: UNK, TID
     Route: 061
     Dates: start: 20130730

REACTIONS (1)
  - Psychotic disorder [Recovered/Resolved with Sequelae]
